FAERS Safety Report 12336402 (Version 1)
Quarter: 2016Q2

REPORT INFORMATION
  Report Type: Spontaneous
  Country: US (occurrence: None)
  Receive Date: 20160504
  Receipt Date: 20160504
  Transmission Date: 20160815
  Serious: No
  Sender: FDA-Public Use
  Company Number: None

PATIENT
  Age: 41 Year
  Sex: Female
  Weight: 90.72 kg

DRUGS (4)
  1. HYZAAR [Suspect]
     Active Substance: HYDROCHLOROTHIAZIDE\LOSARTAN POTASSIUM
     Indication: HYPERTENSION
     Dosage: IN THE MORNING TAKEN BY MOUTH
     Route: 048
     Dates: start: 20160201, end: 20160502
  2. TYLENOL [Concomitant]
     Active Substance: ACETAMINOPHEN
  3. ZRYTEC [Concomitant]
  4. MULTI VITAMIN [Concomitant]
     Active Substance: VITAMINS

REACTIONS (3)
  - Alopecia [None]
  - Muscle spasms [None]
  - Muscle atrophy [None]

NARRATIVE: CASE EVENT DATE: 20160301
